FAERS Safety Report 9681309 (Version 3)
Quarter: 2014Q3

REPORT INFORMATION
  Report Type: Spontaneous
  Country: US (occurrence: US)
  Receive Date: 20131111
  Receipt Date: 20140811
  Transmission Date: 20150326
  Serious: Yes (Hospitalization, Disabling, Other)
  Sender: FDA-Public Use
  Company Number: US-009507513-1311USA003216

PATIENT
  Sex: Female

DRUGS (1)
  1. NUVARING [Suspect]
     Active Substance: ETHINYL ESTRADIOL\ETONOGESTREL
     Dosage: UNK
     Route: 067
     Dates: start: 2008, end: 201111

REACTIONS (9)
  - Aortic dissection [Unknown]
  - Embolism [Unknown]
  - Syncope [Unknown]
  - Hypertension [Unknown]
  - Depression [Unknown]
  - Carotid artery dissection [Unknown]
  - Agitation [Unknown]
  - Cerebrovascular accident [Unknown]
  - Cerebral infarction [Unknown]

NARRATIVE: CASE EVENT DATE: 201111
